FAERS Safety Report 7656124-9 (Version None)
Quarter: 2011Q3

REPORT INFORMATION
  Report Type: 
  Country: None (occurrence: None)
  Receive Date: 20110801
  Receipt Date: 20110708
  Transmission Date: 20111222
  Serious: Yes (Hospitalization)
  Sender: FDA-Public Use
  Company Number: 20110517

PATIENT
  Age: 72 Year
  Sex: Female

DRUGS (4)
  1. PHENERGAN HCL [Concomitant]
  2. CYANOCOBALAMIN [Suspect]
     Indication: VITAMIN B12 DECREASED
     Dosage: 1 ML IM MONTHLY
     Route: 030
     Dates: start: 20110203
  3. PAMELOR [Concomitant]
  4. XANAX [Concomitant]

REACTIONS (2)
  - MIGRAINE [None]
  - CONDITION AGGRAVATED [None]
